FAERS Safety Report 11740413 (Version 2)
Quarter: 2015Q4

REPORT INFORMATION
  Report Type: Spontaneous
  Country: US (occurrence: US)
  Receive Date: 20151110
  Receipt Date: 20151120
  Transmission Date: 20160304
  Serious: No
  Sender: FDA-Public Use
  Company Number: US-ELI_LILLY_AND_COMPANY-US201202007640

PATIENT
  Age: 66 Year
  Sex: Female

DRUGS (6)
  1. VITAMIN D [Concomitant]
     Active Substance: CHOLECALCIFEROL
     Dosage: 2000 U, UNKNOWN
  2. FORTEO [Suspect]
     Active Substance: TERIPARATIDE
     Dosage: 20 UG, QD
  3. FORTEO [Suspect]
     Active Substance: TERIPARATIDE
     Dosage: 20 UG, QD
     Dates: end: 20120627
  4. CALCIUM [Concomitant]
     Active Substance: CALCIUM
  5. FORTEO [Suspect]
     Active Substance: TERIPARATIDE
     Dosage: 20 UG, QD
  6. FORTEO [Suspect]
     Active Substance: TERIPARATIDE
     Indication: OSTEOPOROSIS
     Dosage: 20 UG, QD
     Dates: start: 20120118

REACTIONS (14)
  - Diabetes mellitus [Unknown]
  - Carpal tunnel syndrome [Unknown]
  - Hot flush [Unknown]
  - Fear [Unknown]
  - Alopecia [Unknown]
  - Paraesthesia [Unknown]
  - Blood calcium increased [Not Recovered/Not Resolved]
  - Weight decreased [Unknown]
  - Back pain [Unknown]
  - Hypoaesthesia [Unknown]
  - Heart rate increased [Unknown]
  - Hair disorder [Unknown]
  - Injection site pain [Unknown]
  - Chills [Unknown]

NARRATIVE: CASE EVENT DATE: 20120118
